FAERS Safety Report 7357034-7 (Version None)
Quarter: 2011Q1

REPORT INFORMATION
  Report Type: 
  Country: None (occurrence: None)
  Receive Date: 20110310
  Receipt Date: 20110310
  Transmission Date: 20110831
  Serious: Yes (Other)
  Sender: FDA-Public Use
  Company Number: None

PATIENT
  Age: 45 Year
  Sex: Female

DRUGS (1)
  1. CRESTOR [Suspect]
     Indication: BLOOD CHOLESTEROL INCREASED
     Dates: start: 20080101

REACTIONS (7)
  - HYPOTHYROIDISM [None]
  - PARAESTHESIA [None]
  - ARTHRALGIA [None]
  - SENSATION OF PRESSURE [None]
  - HYPOAESTHESIA [None]
  - MYALGIA [None]
  - HEADACHE [None]
